FAERS Safety Report 8847287 (Version 1)
Quarter: 2012Q4

REPORT INFORMATION
  Report Type: 
  Country: US (occurrence: US)
  Receive Date: 20121018
  Receipt Date: 20121018
  Transmission Date: 20130627
  Serious: Yes (Hospitalization, Disabling, Other)
  Sender: FDA-Public Use
  Company Number: US-009507513-1107USA03464

PATIENT

DRUGS (8)
  1. FOSAMAX [Suspect]
     Indication: PROPHYLAXIS
     Dosage: 5 mg, qd
     Route: 048
     Dates: start: 19970826, end: 200108
  2. FOSAMAX [Suspect]
     Dosage: 70 mg, UNK
     Route: 048
     Dates: start: 200109, end: 200312
  3. FOSAMAX [Suspect]
     Dosage: 70 mg, UNK
     Route: 048
     Dates: start: 200401, end: 200509
  4. CALCIUM CITRATE [Concomitant]
     Dosage: 312 mg, qd
     Dates: start: 198001
  5. CALCIUM CITRATE [Concomitant]
     Dosage: 1500 mg, UNK
  6. OMEGA-3 MARINE TRIGLYCERIDES [Concomitant]
     Dosage: 1200 mg, qd
     Dates: start: 1997
  7. TAMOXIFEN CITRATE [Suspect]
     Indication: BREAST CANCER
     Dates: start: 199803
  8. MK-9278 [Concomitant]
     Dosage: UNK, qd

REACTIONS (79)
  - Femur fracture [Unknown]
  - Osteoporosis [Not Recovered/Not Resolved]
  - Stress fracture [Not Recovered/Not Resolved]
  - Femur fracture [Not Recovered/Not Resolved]
  - Low turnover osteopathy [Not Recovered/Not Resolved]
  - Femur fracture [Unknown]
  - Foot fracture [Unknown]
  - Foot fracture [Unknown]
  - Hypertension [Unknown]
  - Hypercholesterolaemia [Unknown]
  - Herpes zoster [Unknown]
  - Herpes zoster ophthalmic [Unknown]
  - Bone disorder [Unknown]
  - Breast fibrosis [Unknown]
  - Breast necrosis [Unknown]
  - Foreign body reaction [Unknown]
  - Occult blood positive [Unknown]
  - Urinary incontinence [Unknown]
  - Impaired healing [Unknown]
  - Large intestine polyp [Unknown]
  - Gastrointestinal disorder [Unknown]
  - Nocturia [Unknown]
  - Cystitis [Unknown]
  - Arthritis [Unknown]
  - Anaemia [Unknown]
  - Increased tendency to bruise [Unknown]
  - Hair growth abnormal [Unknown]
  - Femur fracture [Unknown]
  - Herpes zoster [Unknown]
  - Breast disorder [Unknown]
  - Blood calcium increased [Unknown]
  - Libido decreased [Not Recovered/Not Resolved]
  - Dyspareunia [Not Recovered/Not Resolved]
  - Bone metabolism disorder [Unknown]
  - Tendon disorder [Unknown]
  - Scar [Unknown]
  - Glomerular filtration rate decreased [Unknown]
  - Hypercalcaemia [Unknown]
  - Aspartate aminotransferase increased [Unknown]
  - Blood creatine phosphokinase increased [Unknown]
  - Tumour marker increased [Unknown]
  - Liver function test abnormal [Unknown]
  - Pulmonary mass [Unknown]
  - Pulmonary fibrosis [Unknown]
  - Tuberculosis [Unknown]
  - Mycobacterium avium complex infection [Unknown]
  - Fungal infection [Unknown]
  - Adrenal mass [Unknown]
  - Leukopenia [Unknown]
  - Depression [Unknown]
  - Clavicle fracture [Unknown]
  - Anxiety [Unknown]
  - Osteopenia [Unknown]
  - Benign neoplasm [Unknown]
  - Renal failure [Unknown]
  - Febrile neutropenia [Unknown]
  - Pneumonia [Unknown]
  - Atrophy [Unknown]
  - Hypercalciuria [Unknown]
  - Gastrooesophageal reflux disease [Unknown]
  - Osteoarthritis [Unknown]
  - Colon adenoma [Unknown]
  - Hyperproteinaemia [Unknown]
  - Lymphoedema [Unknown]
  - Humerus fracture [Unknown]
  - Large intestine polyp [Unknown]
  - Haemorrhoids [Unknown]
  - Diverticulum [Unknown]
  - Positron emission tomogram abnormal [Unknown]
  - Blood creatine phosphokinase increased [Unknown]
  - Rhinitis allergic [Unknown]
  - Constipation [Unknown]
  - Tendon operation [Unknown]
  - Tendon disorder [Unknown]
  - Tendon operation [Unknown]
  - Tendon disorder [Unknown]
  - Exostosis [Unknown]
  - Bone lesion excision [Unknown]
  - Foot operation [Unknown]
